FAERS Safety Report 20237482 (Version 3)
Quarter: 2022Q1

REPORT INFORMATION
  Report Type: Spontaneous
  Country: BR (occurrence: BR)
  Receive Date: 20211228
  Receipt Date: 20220107
  Transmission Date: 20220423
  Serious: Yes (Other)
  Sender: FDA-Public Use
  Company Number: BR-NOVARTISPH-NVSC2021BR265058

PATIENT
  Age: 74 Year
  Sex: Male
  Weight: 103 kg

DRUGS (5)
  1. DOXAZOSIN MESYLATE [Interacting]
     Active Substance: DOXAZOSIN MESYLATE
     Indication: Prostatic disorder
     Dosage: 2 MG, BID
     Route: 065
  2. DOXAZOSIN MESYLATE [Interacting]
     Active Substance: DOXAZOSIN MESYLATE
     Indication: Prostatomegaly
     Dosage: 2 MG, QD
     Route: 048
  3. DOXAZOSIN MESYLATE [Interacting]
     Active Substance: DOXAZOSIN MESYLATE
     Dosage: 4 MG (IN THE MORNING)
     Route: 065
  4. LOSARTAN [Suspect]
     Active Substance: LOSARTAN
     Indication: Blood pressure measurement
     Dosage: UNK
     Route: 065
  5. HYDROCHLOROTHIAZIDE [Concomitant]
     Active Substance: HYDROCHLOROTHIAZIDE
     Indication: Product used for unknown indication
     Dosage: UNK
     Route: 065

REACTIONS (9)
  - Urinary retention [Unknown]
  - Pain [Unknown]
  - Bladder pain [Recovered/Resolved]
  - Prostatic disorder [Unknown]
  - Malaise [Recovered/Resolved]
  - Dizziness [Recovered/Resolved]
  - Ejaculation failure [Not Recovered/Not Resolved]
  - Testicular pain [Not Recovered/Not Resolved]
  - Inappropriate schedule of product administration [Unknown]

NARRATIVE: CASE EVENT DATE: 20211112
